FAERS Safety Report 7410728-7 (Version None)
Quarter: 2011Q2

REPORT INFORMATION
  Report Type: 
  Country: None (occurrence: None)
  Receive Date: 20110405
  Receipt Date: 20110321
  Transmission Date: 20111010
  Serious: Yes (Other)
  Sender: FDA-Public Use
  Company Number: 2011BN000023

PATIENT
  Age: 28 Month

DRUGS (3)
  1. MELPHALAN HYDROCHLORIDE [Suspect]
     Indication: INTRAOCULAR RETINOBLASTOMA
     Dosage: 0.35 MG/KG;IART
  2. HEPARIN [Concomitant]
  3. TOPOTECAN [Concomitant]

REACTIONS (3)
  - POLYPOIDAL CHOROIDAL VASCULOPATHY [None]
  - VITREOUS HAEMORRHAGE [None]
  - RETINAL ARTERY EMBOLISM [None]
